FAERS Safety Report 4854569-3 (Version None)
Quarter: 2005Q4

REPORT INFORMATION
  Report Type: 
  Country: None (occurrence: None)
  Receive Date: 20051215
  Receipt Date: 20051013
  Transmission Date: 20060501
  Serious: Yes (Hospitalization, Other)
  Sender: FDA-Public Use
  Company Number: 2005AP05364

PATIENT
  Age: 27008 Day
  Sex: Male

DRUGS (3)
  1. OMEPRAZOLE [Suspect]
     Indication: GASTRIC ULCER
     Route: 048
     Dates: start: 20050827, end: 20050906
  2. MESADORIN-S [Suspect]
     Indication: GASTRIC ULCER
     Route: 048
     Dates: start: 20050827, end: 20050906
  3. MUCOSTA [Suspect]
     Indication: GASTRIC ULCER
     Route: 048
     Dates: start: 20050827, end: 20050906

REACTIONS (10)
  - ASPARTATE AMINOTRANSFERASE INCREASED [None]
  - BLOOD CREATINE PHOSPHOKINASE INCREASED [None]
  - DIARRHOEA [None]
  - DIFFICULTY IN WALKING [None]
  - MUSCULAR WEAKNESS [None]
  - MYALGIA [None]
  - OEDEMA [None]
  - OEDEMA PERIPHERAL [None]
  - PYREXIA [None]
  - URINARY TRACT INFECTION [None]
